FAERS Safety Report 14753580 (Version 1)
Quarter: 2018Q2

REPORT INFORMATION
  Report Type: Report from Study
  Country: US (occurrence: US)
  Receive Date: 20180412
  Receipt Date: 20180412
  Transmission Date: 20180711
  Serious: Yes (Death, Other)
  Sender: FDA-Public Use
  Company Number: US-TEVA-2018-US-879663

PATIENT
  Age: 70 Year
  Sex: Female

DRUGS (1)
  1. MORPHINE [Suspect]
     Active Substance: MORPHINE
     Route: 065

REACTIONS (6)
  - Metabolic acidosis [Unknown]
  - Toxicity to various agents [Fatal]
  - Tachycardia [Unknown]
  - Pneumonia aspiration [Unknown]
  - Coma [Unknown]
  - Depressed level of consciousness [Unknown]
